FAERS Safety Report 17043957 (Version 1)
Quarter: 2019Q4

REPORT INFORMATION
  Report Type: Spontaneous
  Country: US (occurrence: US)
  Receive Date: 20191118
  Receipt Date: 20191118
  Transmission Date: 20200122
  Serious: Yes (Hospitalization, Other)
  Sender: FDA-Public Use
  Company Number: US-ASTRAZENECA-2019SF61731

PATIENT
  Age: 320 Day
  Sex: Male
  Weight: 10.1 kg

DRUGS (1)
  1. SYNAGIS [Suspect]
     Active Substance: PALIVIZUMAB
     Indication: PRODUCT USED FOR UNKNOWN INDICATION
     Route: 030

REACTIONS (6)
  - Cyanosis neonatal [Unknown]
  - Vomiting [Unknown]
  - Respiratory failure [Unknown]
  - Hypoxia [Unknown]
  - Pneumonia aspiration [Unknown]
  - Chronic respiratory failure [Unknown]

NARRATIVE: CASE EVENT DATE: 20190205
